FAERS Safety Report 9319406 (Version 1)
Quarter: 2013Q2

REPORT INFORMATION
  Report Type: Spontaneous
  Country: US (occurrence: None)
  Receive Date: 20130529
  Receipt Date: 20130529
  Transmission Date: 20140414
  Serious: No
  Sender: FDA-Public Use
  Company Number: None

PATIENT
  Age: 84 None
  Sex: Male

DRUGS (1)
  1. LEVOFLOXACIN [Suspect]
     Indication: PNEUMONIA BACTERIAL
     Route: 048
     Dates: start: 20130510, end: 20130518

REACTIONS (2)
  - Pain in extremity [None]
  - Gait disturbance [None]
